FAERS Safety Report 6966760-0 (Version None)
Quarter: 2010Q3

REPORT INFORMATION
  Report Type: 
  Country: None (occurrence: None)
  Receive Date: 20100906
  Receipt Date: 20100902
  Transmission Date: 20110219
  Serious: Yes (Hospitalization)
  Sender: FDA-Public Use
  Company Number: PL-BRISTOL-MYERS SQUIBB COMPANY-15245194

PATIENT
  Age: 71 Year
  Sex: Female
  Weight: 60 kg

DRUGS (2)
  1. CARBOPLATIN [Suspect]
     Indication: OVARIAN CANCER
     Dosage: RECENT INF ON 30MAR10 (DURATION 106 DAYS)
     Route: 042
     Dates: start: 20091215
  2. PACLITAXEL [Suspect]
     Indication: OVARIAN CANCER
     Dosage: RECENT INF ON 30MAR10 (DURATION 106 DAYS)
     Route: 042
     Dates: start: 20091215

REACTIONS (1)
  - DERMATOMYOSITIS [None]
